FAERS Safety Report 24265281 (Version 1)
Quarter: 2024Q3

REPORT INFORMATION
  Report Type: Spontaneous
  Country: CN (occurrence: CN)
  Receive Date: 20240829
  Receipt Date: 20240829
  Transmission Date: 20241017
  Serious: Yes (Other)
  Sender: MERCK
  Company Number: CN-009507513-2408CHN009664

PATIENT
  Age: 52 Year
  Sex: Male
  Weight: 62 kg

DRUGS (2)
  1. JANUVIA [Suspect]
     Active Substance: SITAGLIPTIN PHOSPHATE
     Indication: Blood glucose abnormal
     Dosage: 100 MG, QD
     Route: 048
     Dates: start: 20240821, end: 20240821
  2. METFORMIN HYDROCHLORIDE [Concomitant]
     Active Substance: METFORMIN HYDROCHLORIDE
     Indication: Blood glucose abnormal
     Dosage: 0.5 G, TID
     Route: 048
     Dates: start: 20210725, end: 20240822

REACTIONS (2)
  - Dermatitis allergic [Recovering/Resolving]
  - Laryngopharyngitis [Recovering/Resolving]

NARRATIVE: CASE EVENT DATE: 20240821
